FAERS Safety Report 4637737-5 (Version None)
Quarter: 2005Q2

REPORT INFORMATION
  Report Type: 
  Country: None (occurrence: None)
  Receive Date: 20050418
  Receipt Date: 20041216
  Transmission Date: 20051028
  Serious: Yes (Hospitalization)
  Sender: FDA-Public Use
  Company Number: US-MERCK-0412USA02137

PATIENT
  Age: 55 Year
  Sex: Female
  Weight: 75 kg

DRUGS (7)
  1. VIOXX [Suspect]
     Indication: ARTHRITIS
     Route: 048
     Dates: start: 20020101, end: 20021126
  2. VIOXX [Suspect]
     Route: 048
     Dates: start: 20030101, end: 20030601
  3. VIOXX [Suspect]
     Route: 048
     Dates: start: 20010101, end: 20040401
  4. CELEXA [Concomitant]
     Route: 065
  5. CELEBREX [Concomitant]
     Route: 048
     Dates: start: 20000601, end: 20010101
  6. PLAVIX [Concomitant]
     Route: 065
     Dates: start: 20021101
  7. DARVOCET-N 100 [Concomitant]
     Indication: NAUSEA
     Route: 065
     Dates: start: 20021101

REACTIONS (8)
  - CEREBROVASCULAR ACCIDENT [None]
  - DYSPEPSIA [None]
  - EMOTIONAL DISTRESS [None]
  - GASTROOESOPHAGEAL REFLUX DISEASE [None]
  - INJURY [None]
  - NAUSEA [None]
  - SLEEP APNOEA SYNDROME [None]
  - WEIGHT DECREASED [None]
